FAERS Safety Report 13677607 (Version 1)
Quarter: 2017Q2

REPORT INFORMATION
  Report Type: Spontaneous
  Country: US (occurrence: US)
  Receive Date: 20170621
  Receipt Date: 20170621
  Transmission Date: 20170830
  Serious: Yes (Hospitalization, Other)
  Sender: FDA-Public Use
  Company Number: None

PATIENT
  Age: 62 Year
  Sex: Male

DRUGS (2)
  1. TEMOZOLOMIDE 250MG AND 100MG SANDOZ [Suspect]
     Active Substance: TEMOZOLOMIDE
     Indication: NEUROENDOCRINE TUMOUR
     Route: 048
     Dates: start: 20170420, end: 20170601
  2. CAPECITABINE 500MG AND 150 ACCORD [Suspect]
     Active Substance: CAPECITABINE
     Indication: NEUROENDOCRINE TUMOUR
     Route: 048
     Dates: start: 20170420, end: 20170601

REACTIONS (3)
  - Stomatitis [None]
  - Laboratory test abnormal [None]
  - Gastrointestinal disorder [None]

NARRATIVE: CASE EVENT DATE: 20170605
